FAERS Safety Report 18112197 (Version 3)
Quarter: 2020Q3

REPORT INFORMATION
  Report Type: Report from Study
  Country: None (occurrence: BR)
  Receive Date: 20200805
  Receipt Date: 20200909
  Transmission Date: 20201103
  Serious: Yes (Other)
  Sender: FDA-Public Use
  Company Number: BR-ABBVIE-20K-020-3508301-00

PATIENT
  Age: 26 Year
  Sex: Male
  Weight: 73 kg

DRUGS (6)
  1. HUMIRA [Suspect]
     Active Substance: ADALIMUMAB
     Route: 058
     Dates: start: 20200722, end: 20200827
  2. SELENIUM [Concomitant]
     Active Substance: SELENIUM
     Indication: PRODUCT USED FOR UNKNOWN INDICATION
  3. ZINC. [Concomitant]
     Active Substance: ZINC
     Indication: PRODUCT USED FOR UNKNOWN INDICATION
  4. HUMIRA [Suspect]
     Active Substance: ADALIMUMAB
     Indication: CROHN^S DISEASE
     Route: 058
     Dates: start: 20161201
  5. VITAMIN D [VITAMIN D NOS] [Concomitant]
     Active Substance: VITAMIN D NOS
     Indication: PRODUCT USED FOR UNKNOWN INDICATION
  6. VITAMIN E AND C [Concomitant]
     Active Substance: ASCORBIC ACID\TOCOPHEROL
     Indication: PRODUCT USED FOR UNKNOWN INDICATION

REACTIONS (11)
  - Muscle abscess [Recovered/Resolved]
  - C-reactive protein increased [Unknown]
  - COVID-19 [Recovered/Resolved]
  - Palatal disorder [Recovered/Resolved]
  - Rhinitis [Recovered/Resolved]
  - Pain in extremity [Recovered/Resolved]
  - Abscess [Not Recovered/Not Resolved]
  - Abscess [Not Recovered/Not Resolved]
  - Red blood cell sedimentation rate increased [Unknown]
  - Red cell distribution width increased [Not Recovered/Not Resolved]
  - Pain [Not Recovered/Not Resolved]

NARRATIVE: CASE EVENT DATE: 202005
